FAERS Safety Report 10944750 (Version 1)
Quarter: 2015Q1

REPORT INFORMATION
  Report Type: Spontaneous
  Country: US (occurrence: None)
  Receive Date: 20150212
  Receipt Date: 20150212
  Transmission Date: 20150721
  Serious: No
  Sender: FDA-Public Use
  Company Number: 2014TUS011336

PATIENT
  Age: 89 Year
  Sex: Female
  Weight: 72.6 kg

DRUGS (1)
  1. NESINA [Suspect]
     Active Substance: ALOGLIPTIN BENZOATE
     Indication: DIABETES MELLITUS
     Route: 048
     Dates: start: 2013

REACTIONS (5)
  - Ear pain [None]
  - Oropharyngeal pain [None]
  - Back pain [None]
  - Musculoskeletal pain [None]
  - Groin pain [None]

NARRATIVE: CASE EVENT DATE: 20141103
